FAERS Safety Report 4621898-8 (Version None)
Quarter: 2005Q1

REPORT INFORMATION
  Report Type: 
  Country: None (occurrence: None)
  Receive Date: 20050329
  Receipt Date: 20050324
  Transmission Date: 20050727
  Serious: Yes (Hospitalization)
  Sender: FDA-Public Use
  Company Number: 123

PATIENT
  Age: 70 Year
  Sex: Female

DRUGS (15)
  1. MELPHALAN [Suspect]
     Indication: MULTIPLE MYELOMA
     Route: 042
     Dates: start: 20041217
  2. METHADONE HCL [Concomitant]
     Indication: DRUG DEPENDENCE
     Dosage: 5MG THREE TIMES PER DAY
     Route: 048
  3. AMBIEN [Concomitant]
     Indication: INSOMNIA
     Route: 048
  4. ACYCLOVIR [Concomitant]
     Indication: HERPES SIMPLEX
     Route: 048
  5. FLUCONAZOLE [Concomitant]
     Indication: FUNGAL INFECTION
     Route: 048
  6. LEVAQUIN [Concomitant]
     Route: 048
  7. PROTONIX [Concomitant]
     Indication: GASTROOESOPHAGEAL REFLUX DISEASE
     Dosage: 40MG PER DAY
     Route: 048
  8. TEQUIN [Concomitant]
     Dosage: 400MG PER DAY
     Route: 048
  9. ZOLOFT [Concomitant]
     Indication: DEPRESSION
     Dosage: 50MG PER DAY
     Route: 048
  10. DETROL [Concomitant]
     Indication: URINARY INCONTINENCE
     Dosage: 4MG PER DAY
     Route: 048
  11. DIGOXIN [Concomitant]
     Indication: CARDIAC FAILURE
     Dosage: .25MG PER DAY
     Route: 048
  12. MULTI-VITAMINS [Concomitant]
     Route: 048
  13. FOLIC ACID [Concomitant]
     Indication: NUTRITIONAL SUPPORT
     Route: 048
  14. FLEXERIL [Concomitant]
     Indication: MUSCLE RELAXANT THERAPY
     Dosage: 10MG PER DAY
     Route: 048
  15. HYDROCHLOROTHIAZIDE [Concomitant]
     Indication: DIURETIC THERAPY
     Dosage: 25MG PER DAY
     Route: 048

REACTIONS (13)
  - BLOOD DISORDER [None]
  - BLOOD TEST ABNORMAL [None]
  - CENTRAL LINE INFECTION [None]
  - DYSPHAGIA [None]
  - HAEMOGLOBIN DECREASED [None]
  - MUCOSAL INFLAMMATION [None]
  - NEUTROPENIA [None]
  - OESOPHAGEAL PAIN [None]
  - OESOPHAGITIS [None]
  - ORAL INTAKE REDUCED [None]
  - PLATELET COUNT DECREASED [None]
  - PRODUCTIVE COUGH [None]
  - STAPHYLOCOCCAL BACTERAEMIA [None]
